FAERS Safety Report 10224746 (Version 1)
Quarter: 2014Q2

REPORT INFORMATION
  Report Type: Spontaneous
  Country: CN (occurrence: CN)
  Receive Date: 20140609
  Receipt Date: 20140609
  Transmission Date: 20141212
  Serious: Yes (Other)
  Sender: FDA-Public Use
  Company Number: CN-MYLANLABS-2014S1013127

PATIENT
  Age: 58 Year
  Sex: Male

DRUGS (1)
  1. INDAPAMIDE [Suspect]
     Route: 048

REACTIONS (1)
  - Pemphigus [Recovering/Resolving]
